APPROVED DRUG PRODUCT: TAVALISSE
Active Ingredient: FOSTAMATINIB DISODIUM
Strength: EQ 100MG BASE
Dosage Form/Route: TABLET;ORAL
Application: N209299 | Product #001
Applicant: RIGEL PHARMACEUTICALS INC
Approved: Apr 17, 2018 | RLD: Yes | RS: No | Type: RX

PATENTS:
Patent 9283238 | Expires: Jun 17, 2026
Patent 8951504 | Expires: Jul 27, 2032
Patent 8912170 | Expires: Jun 17, 2026
Patent 7538108 | Expires: Mar 28, 2026
Patent 8163902 | Expires: Jun 17, 2026
Patent 9266912 | Expires: Jan 19, 2026
Patent 7989448 | Expires: Jun 12, 2026
Patent 8445485 | Expires: Jun 17, 2026
Patent 8652492 | Expires: Nov 6, 2028
Patent 8263122 | Expires: Nov 24, 2030
Patent 8211889 | Expires: Jan 19, 2026
Patent RE48898 | Expires: Jan 19, 2026
Patent 7449458 | Expires: Sep 4, 2031
Patent 8771648 | Expires: Jul 27, 2032